FAERS Safety Report 17407338 (Version 1)
Quarter: 2020Q1

REPORT INFORMATION
  Report Type: Spontaneous
  Country: US (occurrence: US)
  Receive Date: 20200211
  Receipt Date: 20200211
  Transmission Date: 20200409
  Serious: No
  Sender: FDA-Public Use
  Company Number: None

PATIENT
  Age: 81 Year
  Sex: Male
  Weight: 117.93 kg

DRUGS (2)
  1. BUMEX [Suspect]
     Active Substance: BUMETANIDE
  2. BD CAREFUSION ALARIS PC [DEVICE] [Suspect]
     Active Substance: DEVICE

REACTIONS (1)
  - Incorrect dose administered by device [None]

NARRATIVE: CASE EVENT DATE: 20200127
